FAERS Safety Report 15733283 (Version 5)
Quarter: 2019Q1

REPORT INFORMATION
  Report Type: Spontaneous
  Country: JP (occurrence: JP)
  Receive Date: 20181218
  Receipt Date: 20190305
  Transmission Date: 20190417
  Serious: Yes (Death, Hospitalization, Other)
  Sender: FDA-Public Use
  Company Number: JP-BRISTOL-MYERS SQUIBB COMPANY-BMS-2018-118716

PATIENT
  Age: 46 Year
  Sex: Female
  Weight: 36.1 kg

DRUGS (2)
  1. UNITALC (STERILE TALC) [Suspect]
     Active Substance: TALC
     Indication: PLEURAL EFFUSION
     Dosage: 4 G, SINGLE
     Route: 051
     Dates: start: 20171220, end: 20171220
  2. OPDIVO [Suspect]
     Active Substance: NIVOLUMAB
     Indication: HEAD AND NECK CANCER
     Dosage: 108.3 MG (11/17, 12/01)
     Route: 041
     Dates: start: 20171117, end: 20171201

REACTIONS (9)
  - Death [Fatal]
  - Pneumothorax [Recovering/Resolving]
  - Dry mouth [Recovered/Resolved]
  - Pyrexia [Recovered/Resolved]
  - White blood cell count decreased [Recovered/Resolved]
  - Dyspnoea [Not Recovered/Not Resolved]
  - Pleural effusion [Recovering/Resolving]
  - Procedural pain [Recovering/Resolving]
  - Decreased appetite [Not Recovered/Not Resolved]

NARRATIVE: CASE EVENT DATE: 20171215
